FAERS Safety Report 6058127-7 (Version None)
Quarter: 2009Q1

REPORT INFORMATION
  Report Type: 
  Country: None (occurrence: None)
  Receive Date: 20090127
  Receipt Date: 20090117
  Transmission Date: 20090719
  Serious: Yes (Life-Threatening, Hospitalization, Other)
  Sender: FDA-Public Use
  Company Number: 2009SP001202

PATIENT
  Age: 32 Year
  Sex: Male

DRUGS (8)
  1. NOXAFIL [Suspect]
     Indication: FUNGAL INFECTION
     Dosage: 800 MG;QD;PO; 600 MG;QD;PO
     Route: 048
     Dates: start: 20080421, end: 20080804
  2. NOXAFIL [Suspect]
     Indication: FUNGAL INFECTION
     Dosage: 800 MG;QD;PO; 600 MG;QD;PO
     Route: 048
     Dates: start: 20080808, end: 20080822
  3. VINCRISTINE [Suspect]
     Indication: NON-HODGKIN'S LYMPHOMA RECURRENT
     Dosage: 2 MG; INBO
     Route: 040
     Dates: start: 20080807, end: 20080807
  4. BLEOMYCIN SULFATE [Concomitant]
  5. BACTRIM [Concomitant]
  6. LANSOPRAZOLE [Concomitant]
  7. DELTACORTENE [Concomitant]
  8. ACICLOVIR [Concomitant]

REACTIONS (3)
  - ABDOMINAL PAIN [None]
  - FAECALOMA [None]
  - INTESTINAL OBSTRUCTION [None]
